FAERS Safety Report 4398260-9 (Version None)
Quarter: 2004Q3

REPORT INFORMATION
  Report Type: 
  Country: None (occurrence: None)
  Receive Date: 20040715
  Receipt Date: 20040701
  Transmission Date: 20050211
  Serious: Yes (Life-Threatening, Hospitalization, Other)
  Sender: FDA-Public Use
  Company Number: CH-BRISTOL-MYERS SQUIBB COMPANY-12640470

PATIENT
  Age: 20 Year
  Sex: Female

DRUGS (5)
  1. ENDOXAN [Suspect]
     Indication: HODGKIN'S DISEASE NODULAR SCLEROSIS STAGE UNSPECIFIED
     Route: 042
     Dates: start: 20040524, end: 20040524
  2. UROMITEXAN [Suspect]
     Indication: CYSTITIS
     Route: 042
     Dates: start: 20040524, end: 20040524
  3. ZOFRAN [Suspect]
     Indication: VOMITING
     Route: 042
     Dates: start: 20040524, end: 20040524
  4. DOMPERIDONE [Suspect]
     Indication: VOMITING
     Route: 048
     Dates: start: 20040524, end: 20040524
  5. DEXACORTIN [Suspect]
     Indication: HODGKIN'S DISEASE NODULAR SCLEROSIS STAGE UNSPECIFIED
     Route: 048
     Dates: start: 20040524, end: 20040524

REACTIONS (1)
  - INAPPROPRIATE ANTIDIURETIC HORMONE SECRETION [None]
